FAERS Safety Report 4423939-X (Version None)
Quarter: 2004Q3

REPORT INFORMATION
  Report Type: 
  Country: None (occurrence: None)
  Receive Date: 20040805
  Receipt Date: 20040727
  Transmission Date: 20050211
  Serious: Yes (Death, Life-Threatening, Hospitalization)
  Sender: FDA-Public Use
  Company Number: 2004215773JP

PATIENT
  Age: 79 Year
  Sex: Female
  Weight: 30 kg

DRUGS (5)
  1. AZULFIDINE EN-TABS [Suspect]
     Indication: RHEUMATOID ARTHRITIS
     Dosage: 500 MG, BID, ORAL
     Route: 048
     Dates: start: 20040426, end: 20040523
  2. METHOTREXATE (METHOTRAXATE) [Suspect]
     Indication: RHEUMATOID ARTHRITIS
     Dosage: ORAL
     Route: 048
     Dates: end: 20040412
  3. GASTER [Concomitant]
  4. HYPEN (ETODOLAC) [Concomitant]
  5. FERROMIA (FERROUS CITRATE) [Concomitant]

REACTIONS (6)
  - BRAIN ABSCESS [None]
  - DEPRESSED LEVEL OF CONSCIOUSNESS [None]
  - HEMIPLEGIA [None]
  - NUCLEAR MAGNETIC RESONANCE IMAGING BRAIN ABNORMAL [None]
  - PANCYTOPENIA [None]
  - PNEUMONIA [None]
